FAERS Safety Report 16873423 (Version 5)
Quarter: 2020Q3

REPORT INFORMATION
  Report Type: Spontaneous
  Country: US (occurrence: US)
  Receive Date: 20191001
  Receipt Date: 20200923
  Transmission Date: 20201102
  Serious: No
  Sender: FDA-Public Use
  Company Number: US-PFIZER INC-2019421046

PATIENT
  Age: 89 Year
  Sex: Male

DRUGS (1)
  1. VYNDAQEL [Suspect]
     Active Substance: TAFAMIDIS MEGLUMINE
     Indication: AMYLOIDOSIS
     Dosage: 80 MG, UNK

REACTIONS (4)
  - Product use in unapproved indication [Unknown]
  - Product label confusion [Unknown]
  - Off label use [Unknown]
  - Hypoacusis [Unknown]
